FAERS Safety Report 16415350 (Version 1)
Quarter: 2019Q2

REPORT INFORMATION
  Report Type: Spontaneous
  Country: US (occurrence: US)
  Receive Date: 20190610
  Receipt Date: 20190610
  Transmission Date: 20190711
  Serious: Yes (Other)
  Sender: FDA-Public Use
  Company Number: None

PATIENT
  Age: 50 Year
  Sex: Female
  Weight: 90 kg

DRUGS (3)
  1. DESSICATED THYROID 81.25MG CAPSULE [Concomitant]
     Active Substance: THYROID, UNSPECIFIED
  2. LIOTHYRONINE SOD 5MCG TAB [Suspect]
     Active Substance: LIOTHYRONINE SODIUM
     Indication: HYPOTHYROIDISM
     Dosage: ?          QUANTITY:2.5 TABLET(S);?
     Route: 048
     Dates: start: 20190429
  3. FISH OIL [Concomitant]
     Active Substance: FISH OIL

REACTIONS (3)
  - Palpitations [None]
  - Product substitution issue [None]
  - Therapeutic product effect increased [None]

NARRATIVE: CASE EVENT DATE: 20190430
